FAERS Safety Report 19821390 (Version 3)
Quarter: 2023Q1

REPORT INFORMATION
  Report Type: Report from Study
  Country: DE (occurrence: DE)
  Receive Date: 20210913
  Receipt Date: 20230123
  Transmission Date: 20230417
  Serious: Yes (Hospitalization)
  Sender: FDA-Public Use
  Company Number: DE-PFIZER INC-202101151622

PATIENT
  Age: 47 Year
  Sex: Female
  Weight: 51 kg

DRUGS (4)
  1. PALBOCICLIB [Suspect]
     Active Substance: PALBOCICLIB
     Indication: Breast cancer
     Dosage: 125 MG, DAILY FROM DAY 1 TO DAY 21 EVERY 28-DAY CYCLE
     Route: 048
     Dates: start: 20210802, end: 20210816
  2. FULVESTRANT [Suspect]
     Active Substance: FULVESTRANT
     Indication: Breast cancer
     Dosage: 500 MG, DAY 1 OF 28-DAY CYCLE
     Route: 030
     Dates: start: 20210802, end: 20211004
  3. KURKUMA [CURCUMA LONGA] [Concomitant]
     Indication: Back pain
     Dosage: UNK
     Route: 048
     Dates: start: 20210724
  4. CHOLECALCIFEROL [Concomitant]
     Active Substance: CHOLECALCIFEROL
     Indication: General physical health deterioration
     Dosage: UNK
     Route: 048
     Dates: start: 20210724

REACTIONS (1)
  - Dyspnoea [Recovered/Resolved]

NARRATIVE: CASE EVENT DATE: 20210816
